FAERS Safety Report 8584288-1 (Version None)
Quarter: 2012Q3

REPORT INFORMATION
  Report Type: 
  Country: None (occurrence: None)
  Receive Date: 20120810
  Receipt Date: 20120727
  Transmission Date: 20120928
  Serious: No
  Sender: FDA-Public Use
  Company Number: US-BIOGENIDEC-2010BI010569

PATIENT
  Sex: Male

DRUGS (4)
  1. TYSABRI [Suspect]
     Route: 042
     Dates: start: 20100225
  2. MIRAPEX [Concomitant]
     Indication: RESTLESS LEGS SYNDROME
     Route: 048
  3. TYSABRI [Suspect]
     Indication: MULTIPLE SCLEROSIS
     Route: 042
     Dates: start: 20050201, end: 20050201
  4. FLAXSEED OIL [Concomitant]

REACTIONS (7)
  - HEADACHE [None]
  - CHILLS [None]
  - BABESIOSIS [None]
  - PRURITUS GENERALISED [None]
  - INFLUENZA LIKE ILLNESS [None]
  - RASH PRURITIC [None]
  - ARTHRALGIA [None]
